FAERS Safety Report 14554490 (Version 1)
Quarter: 2018Q1

REPORT INFORMATION
  Report Type: Spontaneous
  Country: US (occurrence: US)
  Receive Date: 20180218
  Receipt Date: 20180218
  Transmission Date: 20180509
  Serious: Yes (Other)
  Sender: FDA-Public Use
  Company Number: None

PATIENT

DRUGS (1)
  1. BOTOX [Suspect]
     Active Substance: ONABOTULINUMTOXINA
     Indication: MIGRAINE
     Dosage: ?          OTHER FREQUENCY:EVERY 3 MONTHS;?
     Route: 058

REACTIONS (16)
  - Skin exfoliation [None]
  - Facial neuralgia [None]
  - Injection site reaction [None]
  - Skin lesion [None]
  - Impaired healing [None]
  - Hypoaesthesia [None]
  - Skin mass [None]
  - Arthralgia [None]
  - Rash pustular [None]
  - Myalgia [None]
  - Dry eye [None]
  - Vision blurred [None]
  - Neuropathy peripheral [None]
  - Vomiting [None]
  - Injection site pain [None]
  - Influenza like illness [None]

NARRATIVE: CASE EVENT DATE: 20171025
